FAERS Safety Report 8130739-6 (Version None)
Quarter: 2012Q1

REPORT INFORMATION
  Report Type: 
  Country: None (occurrence: None)
  Receive Date: 20120213
  Receipt Date: 20120202
  Transmission Date: 20120608
  Serious: No
  Sender: FDA-Public Use
  Company Number: US-BIOGENIDEC-2012BI004359

PATIENT
  Age: 51 Year
  Sex: Female

DRUGS (2)
  1. TYSABRI [Suspect]
     Indication: MULTIPLE SCLEROSIS
     Route: 042
     Dates: start: 20070511, end: 20070912
  2. TYSABRI [Suspect]
     Route: 042
     Dates: start: 20071115, end: 20111206

REACTIONS (4)
  - NEURALGIA [None]
  - TREMOR [None]
  - MUSCULAR WEAKNESS [None]
  - ASTHENIA [None]
